FAERS Safety Report 10359065 (Version 1)
Quarter: 2014Q3

REPORT INFORMATION
  Report Type: Report from Study
  Country: US (occurrence: US)
  Receive Date: 20140804
  Receipt Date: 20140804
  Transmission Date: 20150326
  Serious: Yes (Other)
  Sender: FDA-Public Use
  Company Number: US-ROCHE-1440553

PATIENT
  Sex: Male
  Weight: 52.21 kg

DRUGS (1)
  1. NUTROPIN AQ [Suspect]
     Active Substance: SOMATROPIN
     Indication: GROWTH HORMONE DEFICIENCY
     Route: 058
     Dates: start: 20130620

REACTIONS (6)
  - Electrocardiogram QT prolonged [Unknown]
  - Testicular pain [Unknown]
  - Drug dose omission [Unknown]
  - Nose deformity [Unknown]
  - Ankle deformity [Unknown]
  - Anxiety [Unknown]
